FAERS Safety Report 9208957 (Version 1)
Quarter: 2013Q2

REPORT INFORMATION
  Report Type: Spontaneous
  Country: IT (occurrence: IT)
  Receive Date: 20130404
  Receipt Date: 20130404
  Transmission Date: 20140414
  Serious: Yes (Other)
  Sender: FDA-Public Use
  Company Number: PHHY2013IT031136

PATIENT
  Age: 5 Year
  Sex: Male

DRUGS (2)
  1. EXJADE [Suspect]
     Indication: IRON OVERLOAD
     Dosage: 30 MG, UNK
  2. EXJADE [Suspect]
     Dosage: 15 MG - 20 MG, UNK

REACTIONS (2)
  - Herpes simplex encephalitis [Unknown]
  - Renal tubular disorder [Unknown]
